FAERS Safety Report 9735452 (Version 1)
Quarter: 2013Q4

REPORT INFORMATION
  Report Type: Spontaneous
  Country: US (occurrence: US)
  Receive Date: 20131206
  Receipt Date: 20131206
  Transmission Date: 20140711
  Serious: No
  Sender: FDA-Public Use
  Company Number: US-GILEAD-2009-0022871

PATIENT
  Sex: Female
  Weight: 81.65 kg

DRUGS (14)
  1. LETAIRIS [Suspect]
     Indication: PULMONARY ARTERIAL HYPERTENSION
     Route: 048
     Dates: start: 20080820
  2. BENADRYL [Concomitant]
  3. TYLENOL ES [Concomitant]
     Indication: ARTHRITIS
  4. FLONASE [Concomitant]
  5. ATENOLOL [Concomitant]
  6. ZOLOFT [Concomitant]
  7. BUSPAR [Concomitant]
  8. COENZYME Q-10 [Concomitant]
  9. L-ARGININE [Concomitant]
  10. ASPIRIN [Concomitant]
  11. FLAX SEED OIL [Concomitant]
  12. HYDROCHLOROTHIAZIDE [Concomitant]
  13. OMEGA 3 [Concomitant]
  14. MULTIVITAMIN [Concomitant]

REACTIONS (2)
  - Arthralgia [Unknown]
  - Arthritis [Unknown]
